FAERS Safety Report 14479208 (Version 5)
Quarter: 2018Q3

REPORT INFORMATION
  Report Type: Spontaneous
  Country: CH (occurrence: CH)
  Receive Date: 20180202
  Receipt Date: 20180827
  Transmission Date: 20181010
  Serious: Yes (Other)
  Sender: FDA-Public Use
  Company Number: CH-ROCHE-2063694

PATIENT
  Age: 46 Year
  Sex: Male

DRUGS (13)
  1. ACTILYSE [Suspect]
     Active Substance: ALTEPLASE
     Indication: VASCULAR STENT THROMBOSIS
     Dosage: 1 MG/HR OVER 15 HOUR
     Route: 065
  2. PLAVIX [Concomitant]
     Active Substance: CLOPIDOGREL BISULFATE
     Indication: PRODUCT USED FOR UNKNOWN INDICATION
     Dosage: LOADING DOE: 600MG
     Route: 065
  3. FONDAPARINUX [Concomitant]
     Active Substance: FONDAPARINUX
     Indication: PRODUCT USED FOR UNKNOWN INDICATION
     Route: 058
  4. HEPARIN [Concomitant]
     Active Substance: HEPARIN SODIUM
     Indication: PRODUCT USED FOR UNKNOWN INDICATION
     Route: 065
  5. RIVAROXABAN [Concomitant]
     Active Substance: RIVAROXABAN
     Indication: PRODUCT USED FOR UNKNOWN INDICATION
     Dosage: 20 MG (20 MG,QD) MILLIGRAM)(RIVAROXABAN) 30 MG (30 MG, 2 X15 MG Q.D.)
     Route: 048
  6. PRASUGREL. [Concomitant]
     Active Substance: PRASUGREL
     Indication: PRODUCT USED FOR UNKNOWN INDICATION
     Route: 065
  7. ACTILYSE [Suspect]
     Active Substance: ALTEPLASE
     Dosage: 1 MG/HR OVER 18 HOURS
     Route: 065
  8. ACTILYSE [Suspect]
     Active Substance: ALTEPLASE
     Dosage: 1 MG/HR FOR 15 HOUR
     Route: 065
  9. PLAVIX [Concomitant]
     Active Substance: CLOPIDOGREL BISULFATE
     Dosage: MAITENANCE DOSE.
     Route: 065
  10. PHENPROCOUMON [Concomitant]
     Active Substance: PHENPROCOUMON
  11. ACTILYSE [Suspect]
     Active Substance: ALTEPLASE
     Dosage: 2 MG/HR FOR 15 HOUR
     Route: 065
  12. PRADAXA [Suspect]
     Active Substance: DABIGATRAN ETEXILATE MESYLATE
     Indication: ANTICOAGULANT THERAPY
     Route: 048
  13. RIVAROXABAN [Concomitant]
     Active Substance: RIVAROXABAN
     Route: 065

REACTIONS (3)
  - Vascular stent thrombosis [Recovered/Resolved]
  - Thrombosis [Recovered/Resolved]
  - Vascular stent occlusion [Recovered/Resolved]
